FAERS Safety Report 15587130 (Version 1)
Quarter: 2018Q4

REPORT INFORMATION
  Report Type: Spontaneous
  Country: US (occurrence: US)
  Receive Date: 20181105
  Receipt Date: 20181105
  Transmission Date: 20190205
  Serious: Yes (Other)
  Sender: FDA-Public Use
  Company Number: None

PATIENT
  Age: 76 Year
  Sex: Female
  Weight: 36.29 kg

DRUGS (9)
  1. CRANACTIN [Concomitant]
     Active Substance: DIETARY SUPPLEMENT
  2. ZINC. [Concomitant]
     Active Substance: ZINC
  3. MULTI VITAMIN [Concomitant]
     Active Substance: VITAMINS
  4. VITAMIN C [Concomitant]
     Active Substance: ASCORBIC ACID
  5. IMPRIMIS - COMBINATION DRUG PREDNISOLONE - GATIFLOXACIN -BROMFENAC [Suspect]
     Active Substance: BROMFENAC\GATIFLOXACIN\PREDNISOLONE SODIUM PHOSPHATE
     Indication: CATARACT OPERATION
     Dosage: ?          OTHER ROUTE:EYE DROPS?
  6. PREDNISONE 5MG [Concomitant]
     Active Substance: PREDNISONE
  7. VITAMIN E-D3 [Concomitant]
  8. NUTRIFIRON [Concomitant]
  9. PROTEIN POWDER AREDS 2 [Concomitant]

REACTIONS (7)
  - Visual acuity reduced [None]
  - Photophobia [None]
  - Vision blurred [None]
  - Pruritus [None]
  - Condition aggravated [None]
  - Impaired healing [None]
  - Vitreous floaters [None]
